FAERS Safety Report 6991453-3 (Version None)
Quarter: 2010Q3

REPORT INFORMATION
  Report Type: 
  Country: None (occurrence: None)
  Receive Date: 20100916
  Receipt Date: 20090828
  Transmission Date: 20110219
  Serious: Yes (Other)
  Sender: FDA-Public Use
  Company Number: US-WYE-H10755909

PATIENT
  Sex: Male

DRUGS (1)
  1. TORISEL [Suspect]
     Dosage: NOT PROVIDED
     Route: 042

REACTIONS (1)
  - INTERSTITIAL LUNG DISEASE [None]
